FAERS Safety Report 9106071 (Version 4)
Quarter: 2013Q3

REPORT INFORMATION
  Report Type: Spontaneous
  Country: CA (occurrence: CA)
  Receive Date: 20130220
  Receipt Date: 20130904
  Transmission Date: 20140515
  Serious: Yes (Life-Threatening, Hospitalization, Other)
  Sender: FDA-Public Use
  Company Number: CA-PFIZER INC-2013062523

PATIENT
  Age: 59 Year
  Sex: Female

DRUGS (9)
  1. ALTACE [Suspect]
     Dosage: UNK
     Route: 048
  2. METFORMIN HYDROCHLORIDE [Suspect]
     Dosage: 500 MG, 2X/DAY
     Route: 048
  3. RAMIPRIL/HYDROCHLOROTHIAZIDE [Suspect]
     Dosage: 1 DF, 1X/DAY
     Route: 048
  4. VIMOVO [Suspect]
     Indication: SCIATICA
     Dosage: 1 DF, 2X/DAY
     Route: 048
     Dates: start: 20121204, end: 20121208
  5. VIMOVO [Suspect]
     Indication: LIMB DISCOMFORT
  6. GLICLAZIDE [Suspect]
     Dosage: 160 MG, 2X/DAY
     Route: 048
  7. GLICLAZIDE [Suspect]
     Dosage: 80 MG, 2X/DAY
     Route: 048
  8. NORVASC [Concomitant]
     Dosage: UNK
  9. PREDNISONE [Concomitant]
     Dosage: UNK

REACTIONS (3)
  - Hypoglycaemia [Recovering/Resolving]
  - Renal tubular necrosis [Recovering/Resolving]
  - Renal failure acute [Recovering/Resolving]
